FAERS Safety Report 6284896-7 (Version None)
Quarter: 2009Q3

REPORT INFORMATION
  Report Type: 
  Country: None (occurrence: None)
  Receive Date: 20090727
  Receipt Date: 20090714
  Transmission Date: 20100115
  Serious: Yes (Other)
  Sender: FDA-Public Use
  Company Number: B0585298A

PATIENT
  Sex: Female

DRUGS (1)
  1. NICABATE CQ CLEAR 21MG [Suspect]
     Dosage: 3PAT PER DAY
     Route: 062
     Dates: start: 20090708

REACTIONS (11)
  - APPLICATION SITE REACTION [None]
  - CONFUSIONAL STATE [None]
  - FALL [None]
  - HEARING IMPAIRED [None]
  - JOINT INJURY [None]
  - LIMB INJURY [None]
  - LOSS OF CONSCIOUSNESS [None]
  - NIGHT SWEATS [None]
  - SLEEP DISORDER [None]
  - SLEEP TERROR [None]
  - VISUAL IMPAIRMENT [None]
